FAERS Safety Report 5531724-0 (Version None)
Quarter: 2007Q4

REPORT INFORMATION
  Report Type: 
  Country: None (occurrence: None)
  Receive Date: 20071128
  Receipt Date: 20071114
  Transmission Date: 20080405
  Serious: Yes (Other)
  Sender: FDA-Public Use
  Company Number: 2007US002861

PATIENT
  Age: 57 Year
  Sex: Female

DRUGS (9)
  1. PROTOPIC [Suspect]
     Indication: GENITAL EROSION
     Dosage: TOPICAL
     Route: 061
  2. CEFDINIR [Concomitant]
  3. DOXYCYCLINE (DOXYCYCLINE HYCLATE) [Concomitant]
  4. NIACINAMIDE (NIACINAMIDE) [Concomitant]
  5. DAPSONE [Concomitant]
  6. HALOBETASOL PROPIONATE, 0.05 % [Concomitant]
  7. TRIAMCINOLONE ACETONIDE [Concomitant]
  8. PREDNISOLONE ACETATE [Concomitant]
  9. METHOTREXATE [Concomitant]

REACTIONS (7)
  - ACTIVITIES OF DAILY LIVING IMPAIRED [None]
  - BETA HAEMOLYTIC STREPTOCOCCAL INFECTION [None]
  - CONDITION AGGRAVATED [None]
  - DRUG INEFFECTIVE FOR UNAPPROVED INDICATION [None]
  - ENTEROCOCCAL INFECTION [None]
  - HERPES SIMPLEX [None]
  - ORAL CANDIDIASIS [None]
